FAERS Safety Report 16703874 (Version 1)
Quarter: 2019Q3

REPORT INFORMATION
  Report Type: Spontaneous
  Country: CZ (occurrence: CZ)
  Receive Date: 20190814
  Receipt Date: 20190814
  Transmission Date: 20191004
  Serious: Yes (Other)
  Sender: FDA-Public Use
  Company Number: CZ-MYLANLABS-2019M1075002

PATIENT
  Sex: Female

DRUGS (5)
  1. TIMO-COMOD [Concomitant]
     Indication: GLAUCOMA
     Dosage: TWICE DAILY
     Route: 047
  2. SPERSALLERG [Concomitant]
     Indication: OCULAR HYPERAEMIA
  3. SPERSALLERG [Concomitant]
     Indication: EYE PRURITUS
  4. DYMISTIN [Suspect]
     Active Substance: AZELASTINE HYDROCHLORIDE\FLUTICASONE PROPIONATE
     Indication: PRODUCT USED FOR UNKNOWN INDICATION
     Dosage: UNK
     Route: 045
     Dates: start: 20190225
  5. CEZERA [Concomitant]
     Dosage: 1 DOSAGE FORM
     Dates: start: 20190225, end: 20190225

REACTIONS (7)
  - Eye pruritus [Unknown]
  - Erythema of eyelid [Unknown]
  - Nausea [Unknown]
  - Eyelid oedema [Unknown]
  - Fatigue [Unknown]
  - Rash [Recovering/Resolving]
  - Scleral hyperaemia [Unknown]

NARRATIVE: CASE EVENT DATE: 201902
